FAERS Safety Report 18748401 (Version 3)
Quarter: 2021Q1

REPORT INFORMATION
  Report Type: Report from Study
  Country: US (occurrence: US)
  Receive Date: 20210115
  Receipt Date: 20210216
  Transmission Date: 20210419
  Serious: Yes (Death, Hospitalization)
  Sender: FDA-Public Use
  Company Number: US-SEATTLE GENETICS-2021SGN00111

PATIENT
  Age: 68 Year
  Sex: Female

DRUGS (5)
  1. TUCATINIB [Suspect]
     Active Substance: TUCATINIB
     Indication: BREAST CANCER
  2. TUCATINIB [Suspect]
     Active Substance: TUCATINIB
     Indication: HEPATIC NEOPLASM
  3. TUCATINIB [Suspect]
     Active Substance: TUCATINIB
     Indication: BRAIN NEOPLASM MALIGNANT
  4. TUCATINIB [Suspect]
     Active Substance: TUCATINIB
     Indication: BREAST CANCER FEMALE
     Dosage: UNK
  5. TUCATINIB [Suspect]
     Active Substance: TUCATINIB
     Indication: BONE CANCER

REACTIONS (3)
  - Off label use [Unknown]
  - Death [Fatal]
  - Hospitalisation [Unknown]

NARRATIVE: CASE EVENT DATE: 20210116
